FAERS Safety Report 24800333 (Version 1)
Quarter: 2025Q1

REPORT INFORMATION
  Report Type: Spontaneous
  Country: US (occurrence: US)
  Receive Date: 20250102
  Receipt Date: 20250102
  Transmission Date: 20250408
  Serious: No
  Sender: MYLAN
  Company Number: US-MYLANLABS-2024M1109431

PATIENT
  Age: 75 Year
  Sex: Female
  Weight: 52.16 kg

DRUGS (6)
  1. PERFOROMIST [Suspect]
     Active Substance: FORMOTEROL FUMARATE DIHYDRATE
     Indication: Respiratory disorder
     Dosage: 20 MICROGRAM/2 MILLILITER, BID (TWICE A DAY)
     Route: 055
     Dates: start: 20241121, end: 20241124
  2. INCRUSE ELLIPTA [Concomitant]
     Active Substance: UMECLIDINIUM BROMIDE
     Route: 065
  3. ALBUTEROL\IPRATROPIUM [Concomitant]
     Active Substance: ALBUTEROL\IPRATROPIUM
     Route: 065
  4. ADVAIR HFA [Concomitant]
     Active Substance: FLUTICASONE PROPIONATE\SALMETEROL XINAFOATE
     Route: 065
  5. TRAZODONE [Concomitant]
     Active Substance: TRAZODONE HYDROCHLORIDE
     Route: 065
  6. BUDESONIDE [Concomitant]
     Active Substance: BUDESONIDE
     Route: 065

REACTIONS (6)
  - Dyspnoea [Unknown]
  - Malaise [Unknown]
  - Condition aggravated [Unknown]
  - Drug ineffective [Unknown]
  - Incorrect drug administration rate [Unknown]
  - Product packaging quantity issue [Unknown]

NARRATIVE: CASE EVENT DATE: 20241121
